FAERS Safety Report 26066629 (Version 1)
Quarter: 2025Q4

REPORT INFORMATION
  Report Type: Spontaneous
  Country: US (occurrence: US)
  Receive Date: 20251119
  Receipt Date: 20251119
  Transmission Date: 20260117
  Serious: No
  Sender: NOVO NORDISK
  Company Number: US-NOVOPROD-1493623

PATIENT
  Age: 48 Year
  Sex: Male

DRUGS (3)
  1. NOVOLOG [Suspect]
     Active Substance: INSULIN ASPART
     Indication: Product used for unknown indication
     Dosage: 50-60 IU QD
     Dates: start: 20250709
  2. NOVOLOG [Suspect]
     Active Substance: INSULIN ASPART
     Dosage: 95+ IU QD
     Dates: start: 20250709
  3. NOVOLOG [Suspect]
     Active Substance: INSULIN ASPART
     Dosage: 90 IU, QD

REACTIONS (2)
  - Unevaluable event [Not Recovered/Not Resolved]
  - Drug ineffective [Not Recovered/Not Resolved]

NARRATIVE: CASE EVENT DATE: 20250709
